FAERS Safety Report 6729850-3 (Version None)
Quarter: 2010Q2

REPORT INFORMATION
  Report Type: 
  Country: None (occurrence: None)
  Receive Date: 20100513
  Receipt Date: 20100428
  Transmission Date: 20101027
  Serious: Yes (Other)
  Sender: FDA-Public Use
  Company Number: AUR-APL-2010-01192

PATIENT
  Age: 77 Year
  Sex: Male

DRUGS (4)
  1. CIPROFLOXACIN [Suspect]
     Indication: URINARY TRACT INFECTION
     Dosage: 500MG-2 DOSES DAILY-PO
     Route: 048
     Dates: start: 20100409, end: 20100414
  2. NITROFURANTOIN [Concomitant]
  3. ORAMORPH SR [Concomitant]
  4. TRAZODONE HCL [Concomitant]

REACTIONS (3)
  - HALLUCINATION [None]
  - HYPERHIDROSIS [None]
  - RENAL FAILURE ACUTE [None]
